FAERS Safety Report 6205606-5 (Version None)
Quarter: 2009Q2

REPORT INFORMATION
  Report Type: 
  Country: None (occurrence: None)
  Receive Date: 20090527
  Receipt Date: 20090407
  Transmission Date: 20091009
  Serious: No
  Sender: FDA-Public Use
  Company Number: US-ABBOTT-09P-163-0567271-00

PATIENT
  Sex: Male

DRUGS (4)
  1. SIMCOR [Suspect]
     Indication: HIGH DENSITY LIPOPROTEIN DECREASED
     Dosage: 50/20MG - 1 TABLETS DAILY AT BEDTIME
     Dates: start: 20090101
  2. SIMCOR [Suspect]
     Dosage: 50/20MG - 2 TABLETS DAILY AT BEDTIME
     Dates: start: 20081201, end: 20090101
  3. PREDNISONE [Concomitant]
     Indication: DRUG USE FOR UNKNOWN INDICATION
  4. ASPIRIN [Concomitant]
     Indication: DRUG USE FOR UNKNOWN INDICATION

REACTIONS (1)
  - HIGH DENSITY LIPOPROTEIN DECREASED [None]
